FAERS Safety Report 14374307 (Version 2)
Quarter: 2018Q2

REPORT INFORMATION
  Report Type: Spontaneous
  Country: FR (occurrence: FR)
  Receive Date: 20180111
  Receipt Date: 20180531
  Transmission Date: 20180711
  Serious: Yes (Other)
  Sender: FDA-Public Use
  Company Number: FR-MERCK KGAA-2039897

PATIENT
  Age: 62 Year
  Sex: Female
  Weight: 116 kg

DRUGS (1)
  1. NOVOTHYROX [Suspect]
     Active Substance: LEVOTHYROXINE SODIUM
     Indication: AUTOIMMUNE THYROIDITIS
     Route: 048
     Dates: start: 20170531, end: 20170630

REACTIONS (20)
  - Nausea [Not Recovered/Not Resolved]
  - Alopecia [Not Recovered/Not Resolved]
  - Gastrointestinal disorder [Not Recovered/Not Resolved]
  - Insomnia [Not Recovered/Not Resolved]
  - Affective disorder [Not Recovered/Not Resolved]
  - Aggression [Not Recovered/Not Resolved]
  - Anxiety [Not Recovered/Not Resolved]
  - Tinnitus [Not Recovered/Not Resolved]
  - Hot flush [Not Recovered/Not Resolved]
  - Feeling cold [Not Recovered/Not Resolved]
  - Headache [Not Recovered/Not Resolved]
  - Asthenia [Not Recovered/Not Resolved]
  - Depression [Not Recovered/Not Resolved]
  - Hypertensive crisis [Not Recovered/Not Resolved]
  - Vertigo [Not Recovered/Not Resolved]
  - Disturbance in attention [Not Recovered/Not Resolved]
  - Carpal tunnel syndrome [Not Recovered/Not Resolved]
  - Oedema [Not Recovered/Not Resolved]
  - Memory impairment [Not Recovered/Not Resolved]
  - Pain [Not Recovered/Not Resolved]

NARRATIVE: CASE EVENT DATE: 201707
